FAERS Safety Report 4709079-0 (Version None)
Quarter: 2005Q3

REPORT INFORMATION
  Report Type: 
  Country: None (occurrence: None)
  Receive Date: 20050707
  Receipt Date: 20050707
  Transmission Date: 20060218
  Serious: Yes (Other)
  Sender: FDA-Public Use
  Company Number: None

PATIENT
  Age: 49 Year
  Sex: Female

DRUGS (9)
  1. LUNESTA [Suspect]
     Indication: INSOMNIA
     Dosage: ONE TABLET AT BEDTIME
  2. . [Concomitant]
  3. AVANDIA [Concomitant]
  4. AMARYL [Concomitant]
  5. SYNTHROID [Concomitant]
  6. OMEPRAZOLE [Concomitant]
  7. LISINOPRIL [Concomitant]
  8. PREMARIN [Concomitant]
  9. QUININE SULFATE [Concomitant]

REACTIONS (5)
  - DRY MOUTH [None]
  - DYSPNOEA [None]
  - HALLUCINATION [None]
  - HEADACHE [None]
  - PALPITATIONS [None]
